FAERS Safety Report 23045022 (Version 1)
Quarter: 2023Q4

REPORT INFORMATION
  Report Type: Spontaneous
  Country: US (occurrence: US)
  Receive Date: 20231009
  Receipt Date: 20231009
  Transmission Date: 20240109
  Serious: No
  Sender: FDA-Public Use
  Company Number: US-PFIZER INC-202300313140

PATIENT
  Age: 36 Year
  Sex: Female

DRUGS (1)
  1. OXBRYTA [Suspect]
     Active Substance: VOXELOTOR
     Dosage: 3 TABLETS
     Route: 048
     Dates: start: 20230920

REACTIONS (3)
  - Nausea [Unknown]
  - Headache [Unknown]
  - Abdominal pain upper [Unknown]
